FAERS Safety Report 8445651-2 (Version None)
Quarter: 2012Q2

REPORT INFORMATION
  Report Type: 
  Country: None (occurrence: None)
  Receive Date: 20120618
  Receipt Date: 20120614
  Transmission Date: 20120825
  Serious: Yes (Hospitalization, Other)
  Sender: FDA-Public Use
  Company Number: AT-ROXANE LABORATORIES, INC.-2012-RO-01419RO

PATIENT
  Age: 58 Year
  Sex: Female

DRUGS (4)
  1. METHYLPREDNISOLONE [Suspect]
     Indication: SYSTEMIC LUPUS ERYTHEMATOSUS
     Dosage: 4 MG
     Dates: start: 20100101
  2. MYCOPHENOLATE ACID [Suspect]
     Indication: SYSTEMIC LUPUS ERYTHEMATOSUS
     Dosage: 1440 MG
     Dates: start: 20100901
  3. AZATHIOPRINE [Suspect]
     Indication: SYSTEMIC LUPUS ERYTHEMATOSUS
     Dosage: 50 MG
     Dates: start: 20100101, end: 20100901
  4. METHYLPREDNISOLONE [Suspect]
     Dosage: 60 MG

REACTIONS (6)
  - CYTOMEGALOVIRUS INFECTION [None]
  - IMPAIRED HEALING [None]
  - NAUSEA [None]
  - PERITONITIS [None]
  - VOMITING [None]
  - LARGE INTESTINE PERFORATION [None]
